FAERS Safety Report 13531563 (Version 1)
Quarter: 2017Q2

REPORT INFORMATION
  Report Type: Spontaneous
  Country: US (occurrence: US)
  Receive Date: 20170510
  Receipt Date: 20170510
  Transmission Date: 20170830
  Serious: No
  Sender: FDA-Public Use
  Company Number: US-009507513-1705USA001182

PATIENT
  Sex: Female

DRUGS (1)
  1. ASMANEX HFA [Suspect]
     Active Substance: MOMETASONE FUROATE
     Indication: PRODUCT USED FOR UNKNOWN INDICATION
     Dosage: 2 INHALATIONS IN AM/PM
     Route: 055

REACTIONS (4)
  - Drug dose omission [Unknown]
  - Incorrect dose administered by device [Unknown]
  - No adverse event [Unknown]
  - Product quality issue [Unknown]
